FAERS Safety Report 8208277-1 (Version None)
Quarter: 2012Q1

REPORT INFORMATION
  Report Type: 
  Country: None (occurrence: None)
  Receive Date: 20120314
  Receipt Date: 20120310
  Transmission Date: 20120608
  Serious: Yes (Death, Hospitalization)
  Sender: FDA-Public Use
  Company Number: PHHY2012PA021500

PATIENT
  Age: 80 Year
  Sex: Female

DRUGS (5)
  1. METFORMIN [Concomitant]
     Dosage: 850 MG, UNK
     Route: 048
  2. ANALGESICS [Concomitant]
  3. DEXAMETHASONE [Concomitant]
     Dosage: UNK UKN, UNK
  4. ZOLEDRONOC ACID [Suspect]
     Indication: OSTEOPOROSIS
     Dosage: 5 MG, UNK
     Route: 042
     Dates: start: 20110401
  5. DIGOXIN [Concomitant]
     Dosage: UNK UKN, UNK

REACTIONS (5)
  - BONE PAIN [None]
  - DEATH [None]
  - DEPRESSED MOOD [None]
  - DECUBITUS ULCER [None]
  - MOVEMENT DISORDER [None]
